FAERS Safety Report 17810908 (Version 1)
Quarter: 2020Q2

REPORT INFORMATION
  Report Type: Spontaneous
  Country: MY (occurrence: MY)
  Receive Date: 20200521
  Receipt Date: 20200521
  Transmission Date: 20200714
  Serious: Yes (Other)
  Sender: FDA-Public Use
  Company Number: MY-TEVA-2020-MY-1237882

PATIENT
  Age: 10 Year
  Sex: Male

DRUGS (1)
  1. METOCLOPRAMIDE ACTAVIS TABLET 10MG [Suspect]
     Active Substance: METOCLOPRAMIDE HYDROCHLORIDE
     Indication: HICCUPS
     Route: 048

REACTIONS (4)
  - Muscle tightness [Recovering/Resolving]
  - Overdose [Unknown]
  - Dyskinesia [Recovering/Resolving]
  - Gaze palsy [Recovering/Resolving]
